FAERS Safety Report 8541253-8 (Version None)
Quarter: 2012Q3

REPORT INFORMATION
  Report Type: 
  Country: None (occurrence: None)
  Receive Date: 20120726
  Receipt Date: 20120720
  Transmission Date: 20120928
  Serious: Yes (Other)
  Sender: FDA-Public Use
  Company Number: US-CELGENEUS-163-22393-12072328

PATIENT
  Sex: Male
  Weight: 57.113 kg

DRUGS (2)
  1. ISTODAX [Suspect]
     Indication: PERIPHERAL T-CELL LYMPHOMA UNSPECIFIED
     Dosage: 14 MILLIGRAM/SQ. METER
     Route: 041
     Dates: start: 20120326
  2. DECADRON [Concomitant]
     Route: 065

REACTIONS (1)
  - INJECTION SITE EXTRAVASATION [None]
